FAERS Safety Report 21133920 (Version 1)
Quarter: 2022Q3

REPORT INFORMATION
  Report Type: Spontaneous
  Country: US (occurrence: US)
  Receive Date: 20220726
  Receipt Date: 20220726
  Transmission Date: 20221027
  Serious: No
  Sender: FDA-Public Use
  Company Number: US-OYSTER POINT PHARMA, INC.-2022OYS00411

PATIENT
  Sex: Female
  Weight: 58.957 kg

DRUGS (4)
  1. TYRVAYA [Suspect]
     Active Substance: VARENICLINE TARTRATE
     Indication: Dry eye
     Dosage: 1 SPRAY EACH NOSTRIL, 2X/DAY (APPROXIMATELY 12 HOURS APART)
     Route: 045
     Dates: start: 20220215, end: 20220323
  2. ORACEA [Concomitant]
     Active Substance: DOXYCYCLINE
     Dosage: 40 MG
  3. DICLOFENAC [Concomitant]
     Active Substance: DICLOFENAC
     Dosage: 1 MG
  4. ESTRADIOL [Concomitant]
     Active Substance: ESTRADIOL
     Dosage: 75 MG, 2X/DAY

REACTIONS (3)
  - Mucosal inflammation [Recovered/Resolved]
  - Epistaxis [Recovered/Resolved]
  - Nasal discomfort [Recovered/Resolved]

NARRATIVE: CASE EVENT DATE: 20220101
